FAERS Safety Report 18860707 (Version 37)
Quarter: 2023Q1

REPORT INFORMATION
  Report Type: Report from Study
  Country: CA (occurrence: CA)
  Receive Date: 20210208
  Receipt Date: 20230325
  Transmission Date: 20230417
  Serious: Yes (Hospitalization, Other)
  Sender: FDA-Public Use
  Company Number: CA-TAKEDA-2021TUS004751

PATIENT
  Age: 46 Year
  Sex: Male
  Weight: 72 kg

DRUGS (65)
  1. TEDUGLUTIDE [Suspect]
     Active Substance: TEDUGLUTIDE
     Indication: Short-bowel syndrome
     Dosage: 3.6 MILLIGRAM, QD
     Route: 058
     Dates: start: 20210118
  2. TEDUGLUTIDE [Suspect]
     Active Substance: TEDUGLUTIDE
     Indication: Short-bowel syndrome
     Dosage: 3.6 MILLIGRAM, QD
     Route: 058
     Dates: start: 20210118
  3. TEDUGLUTIDE [Suspect]
     Active Substance: TEDUGLUTIDE
     Indication: Short-bowel syndrome
     Dosage: 3.6 MILLIGRAM, QD
     Route: 058
     Dates: start: 20210118
  4. TEDUGLUTIDE [Suspect]
     Active Substance: TEDUGLUTIDE
     Indication: Short-bowel syndrome
     Dosage: 3.6 MILLIGRAM, QD
     Route: 058
     Dates: start: 20210118
  5. TEDUGLUTIDE [Suspect]
     Active Substance: TEDUGLUTIDE
     Dosage: 0.05 MILLIGRAM, QD
     Route: 058
     Dates: start: 20210118
  6. TEDUGLUTIDE [Suspect]
     Active Substance: TEDUGLUTIDE
     Dosage: 0.05 MILLIGRAM, QD
     Route: 058
     Dates: start: 20210118
  7. TEDUGLUTIDE [Suspect]
     Active Substance: TEDUGLUTIDE
     Dosage: 0.05 MILLIGRAM, QD
     Route: 058
     Dates: start: 20210118
  8. TEDUGLUTIDE [Suspect]
     Active Substance: TEDUGLUTIDE
     Dosage: 0.05 MILLIGRAM, QD
     Route: 058
     Dates: start: 20210118
  9. TEDUGLUTIDE [Suspect]
     Active Substance: TEDUGLUTIDE
     Dosage: 3.6 MILLIGRAM, QD
     Route: 058
     Dates: start: 20210118, end: 202205
  10. TEDUGLUTIDE [Suspect]
     Active Substance: TEDUGLUTIDE
     Dosage: 3.6 MILLIGRAM, QD
     Route: 058
     Dates: start: 20210118, end: 202205
  11. TEDUGLUTIDE [Suspect]
     Active Substance: TEDUGLUTIDE
     Dosage: 3.6 MILLIGRAM, QD
     Route: 058
     Dates: start: 20210118, end: 202205
  12. TEDUGLUTIDE [Suspect]
     Active Substance: TEDUGLUTIDE
     Dosage: 3.6 MILLIGRAM, QD
     Route: 058
     Dates: start: 20210118, end: 202205
  13. TEDUGLUTIDE [Suspect]
     Active Substance: TEDUGLUTIDE
     Dosage: 3.6 MILLIGRAM, 1/WEEK
     Route: 058
     Dates: start: 20210118
  14. TEDUGLUTIDE [Suspect]
     Active Substance: TEDUGLUTIDE
     Dosage: 3.6 MILLIGRAM, 1/WEEK
     Route: 058
     Dates: start: 20210118
  15. TEDUGLUTIDE [Suspect]
     Active Substance: TEDUGLUTIDE
     Dosage: 3.6 MILLIGRAM, 1/WEEK
     Route: 058
     Dates: start: 20210118
  16. TEDUGLUTIDE [Suspect]
     Active Substance: TEDUGLUTIDE
     Dosage: 3.6 MILLIGRAM, 1/WEEK
     Route: 058
     Dates: start: 20210118
  17. TEDUGLUTIDE [Suspect]
     Active Substance: TEDUGLUTIDE
     Dosage: 3.6 MILLIGRAM, Q2WEEKS
     Route: 058
     Dates: start: 20210118
  18. TEDUGLUTIDE [Suspect]
     Active Substance: TEDUGLUTIDE
     Dosage: 3.6 MILLIGRAM, Q2WEEKS
     Route: 058
     Dates: start: 20210118
  19. TEDUGLUTIDE [Suspect]
     Active Substance: TEDUGLUTIDE
     Dosage: 3.6 MILLIGRAM, Q2WEEKS
     Route: 058
     Dates: start: 20210118
  20. TEDUGLUTIDE [Suspect]
     Active Substance: TEDUGLUTIDE
     Dosage: 3.6 MILLIGRAM, Q2WEEKS
     Route: 058
     Dates: start: 20210118
  21. TEDUGLUTIDE [Suspect]
     Active Substance: TEDUGLUTIDE
     Dosage: 3.6 MILLIGRAM, QD
     Route: 058
     Dates: start: 20210118
  22. TEDUGLUTIDE [Suspect]
     Active Substance: TEDUGLUTIDE
     Dosage: 3.6 MILLIGRAM, QD
     Route: 058
     Dates: start: 20210118
  23. TEDUGLUTIDE [Suspect]
     Active Substance: TEDUGLUTIDE
     Dosage: 3.6 MILLIGRAM, QD
     Route: 058
     Dates: start: 20210118
  24. TEDUGLUTIDE [Suspect]
     Active Substance: TEDUGLUTIDE
     Dosage: 3.6 MILLIGRAM, QD
     Route: 058
     Dates: start: 20210118
  25. TEDUGLUTIDE [Suspect]
     Active Substance: TEDUGLUTIDE
     Dosage: 3.6 MILLIGRAM, QD
     Route: 050
     Dates: start: 20210118
  26. TEDUGLUTIDE [Suspect]
     Active Substance: TEDUGLUTIDE
     Dosage: 3.6 MILLIGRAM, QD
     Route: 050
     Dates: start: 20210118
  27. TEDUGLUTIDE [Suspect]
     Active Substance: TEDUGLUTIDE
     Dosage: 3.6 MILLIGRAM, QD
     Route: 050
     Dates: start: 20210118
  28. TEDUGLUTIDE [Suspect]
     Active Substance: TEDUGLUTIDE
     Dosage: 3.6 MILLIGRAM, QD
     Route: 050
     Dates: start: 20210118
  29. STELARA [Suspect]
     Active Substance: USTEKINUMAB
     Indication: Product used for unknown indication
     Dosage: 90 MILLIGRAM, MONTHLY
     Route: 058
  30. ESOMEPRAZOLE [Concomitant]
     Active Substance: ESOMEPRAZOLE
     Indication: Product used for unknown indication
     Dosage: 40 MILLIGRAM, BID
     Route: 065
     Dates: start: 20201204
  31. ESOMEPRAZOLE [Concomitant]
     Active Substance: ESOMEPRAZOLE
     Dosage: 40 MILLIGRAM, BID
     Route: 065
  32. ZOPICLONE [Concomitant]
     Active Substance: ZOPICLONE
     Indication: Product used for unknown indication
     Dosage: 7.5 MILLIGRAM, QD
     Route: 065
     Dates: start: 20201204
  33. ZOPICLONE [Concomitant]
     Active Substance: ZOPICLONE
     Dosage: 7.5 MILLIGRAM, Q4HR
     Route: 065
  34. ZOPICLONE [Concomitant]
     Active Substance: ZOPICLONE
     Dosage: 7.5 MILLIGRAM, BID
     Route: 065
  35. OXYCODONE [Concomitant]
     Active Substance: OXYCODONE
     Indication: Procedural pain
     Dosage: 20 MILLIGRAM, Q3HR
     Route: 065
     Dates: start: 20201204
  36. OXYCODONE [Concomitant]
     Active Substance: OXYCODONE
     Dosage: 20 MILLIGRAM, Q3HR
     Route: 065
  37. XARELTO [Concomitant]
     Active Substance: RIVAROXABAN
     Indication: Product used for unknown indication
     Dosage: 20 MILLIGRAM, QD
     Route: 065
     Dates: start: 20201204
  38. XARELTO [Concomitant]
     Active Substance: RIVAROXABAN
     Dosage: 20 MILLIGRAM, QD
     Route: 065
  39. FLUCONAZOLE [Concomitant]
     Active Substance: FLUCONAZOLE
     Indication: Candida infection
     Dosage: 50 MILLIGRAM, QD
     Route: 065
     Dates: start: 20201204
  40. FLUCONAZOLE [Concomitant]
     Active Substance: FLUCONAZOLE
     Dosage: 50 MILLIGRAM, QD
     Route: 065
  41. FLUCONAZOLE [Concomitant]
     Active Substance: FLUCONAZOLE
     Dosage: 200 MILLIGRAM, QD
     Route: 065
  42. NYSTATIN [Concomitant]
     Active Substance: NYSTATIN
     Indication: Product used for unknown indication
     Dosage: 1000 INTERNATIONAL UNIT, BID
     Route: 065
     Dates: start: 20201204
  43. NYSTATIN [Concomitant]
     Active Substance: NYSTATIN
     Dosage: 1000 INTERNATIONAL UNIT, BID
     Route: 065
  44. TEMAZEPAM [Concomitant]
     Active Substance: TEMAZEPAM
     Indication: Product used for unknown indication
     Dosage: 30 MILLIGRAM, QD
     Route: 065
  45. TEMAZEPAM [Concomitant]
     Active Substance: TEMAZEPAM
     Dosage: 30 MILLIGRAM, QID
     Route: 065
  46. CITALOPRAM [Concomitant]
     Active Substance: CITALOPRAM HYDROBROMIDE
     Dosage: 20 MILLIGRAM, BID
     Route: 065
  47. DEXTROAMPHETAMINE HYDROCHLORIDE [Concomitant]
     Active Substance: DEXTROAMPHETAMINE HYDROCHLORIDE
     Indication: Product used for unknown indication
     Dosage: 5 MILLIGRAM
     Route: 065
     Dates: start: 20201204
  48. DEXTROAMPHETAMINE HYDROCHLORIDE [Concomitant]
     Active Substance: DEXTROAMPHETAMINE HYDROCHLORIDE
     Dosage: 6 DOSAGE FORM
     Route: 065
  49. GRAVOL [Concomitant]
     Active Substance: DIMENHYDRINATE
     Indication: Product used for unknown indication
     Dosage: 50 MILLIGRAM, Q6HR
     Route: 065
     Dates: start: 20201204
  50. GRAVOL [Concomitant]
     Active Substance: DIMENHYDRINATE
     Dosage: 50 MILLIGRAM, Q6HR
     Route: 065
  51. GRAVOL [Concomitant]
     Active Substance: DIMENHYDRINATE
     Dosage: 150 MILLIGRAM, Q3HR
  52. FAT EMULSION NOS [Concomitant]
     Active Substance: EGG PHOSPHOLIPIDS\SAFFLOWER OIL\SOYBEAN OIL
     Indication: Product used for unknown indication
     Dosage: 250 MILLILITER, 3/WEEK
     Route: 042
     Dates: start: 20201204
  53. FAT EMULSION NOS [Concomitant]
     Active Substance: EGG PHOSPHOLIPIDS\SAFFLOWER OIL\SOYBEAN OIL
     Dosage: UNK, 4/WEEK
     Route: 065
  54. FAT EMULSION NOS [Concomitant]
     Active Substance: EGG PHOSPHOLIPIDS\SAFFLOWER OIL\SOYBEAN OIL
     Dosage: 250 MILLILITER
     Route: 042
  55. SODIUM CHLORIDE [Concomitant]
     Active Substance: SODIUM CHLORIDE
     Indication: Dehydration
     Dosage: UNK
     Route: 042
     Dates: start: 20201204
  56. SODIUM CHLORIDE [Concomitant]
     Active Substance: SODIUM CHLORIDE
     Dosage: 0.9 PERCENT
     Route: 065
  57. FLOVENT [Concomitant]
     Active Substance: FLUTICASONE PROPIONATE
     Indication: Ostomy bag placement
     Dosage: UNK
     Route: 065
     Dates: start: 20201204
  58. ESCITALOPRAM [Concomitant]
     Active Substance: ESCITALOPRAM OXALATE
     Indication: Product used for unknown indication
     Dosage: 20 MILLIGRAM, QD
     Route: 065
     Dates: start: 20201204
  59. ESCITALOPRAM [Concomitant]
     Active Substance: ESCITALOPRAM OXALATE
     Dosage: 20 MILLIGRAM, QD
     Route: 065
  60. ESCITALOPRAM [Concomitant]
     Active Substance: ESCITALOPRAM OXALATE
     Dosage: 40 MILLIGRAM, QD
  61. DEXTROSE [Concomitant]
     Active Substance: DEXTROSE
     Indication: Product used for unknown indication
     Dosage: UNK UNK, Q2WEEKS
     Route: 042
     Dates: start: 201905
  62. DAYVIGO [Concomitant]
     Active Substance: LEMBOREXANT
     Indication: Sleep disorder
     Dosage: 5 MILLIGRAM
     Route: 065
     Dates: start: 20210830
  63. OLIVE OIL\SOYBEAN OIL [Concomitant]
     Active Substance: OLIVE OIL\SOYBEAN OIL
     Indication: Product used for unknown indication
     Dosage: 250 MILLIGRAM
     Route: 065
     Dates: start: 20190109
  64. CEPHALEXIN [Concomitant]
     Active Substance: CEPHALEXIN
     Indication: Product used for unknown indication
     Dosage: 500 MILLIGRAM, QID
     Route: 065
     Dates: start: 20201204
  65. CEPHALEXIN [Concomitant]
     Active Substance: CEPHALEXIN
     Dosage: 500 MILLIGRAM, QID
     Route: 065

REACTIONS (58)
  - Staphylococcal infection [Not Recovered/Not Resolved]
  - Osteomyelitis [Not Recovered/Not Resolved]
  - Vascular device infection [Unknown]
  - Device related sepsis [Recovered/Resolved]
  - Malaise [Not Recovered/Not Resolved]
  - Faeces hard [Not Recovered/Not Resolved]
  - Oesophageal disorder [Unknown]
  - Faecal volume decreased [Not Recovered/Not Resolved]
  - Back pain [Not Recovered/Not Resolved]
  - Urine output decreased [Not Recovered/Not Resolved]
  - Intervertebral disc compression [Not Recovered/Not Resolved]
  - Osteitis [Not Recovered/Not Resolved]
  - Illness [Unknown]
  - Insomnia [Not Recovered/Not Resolved]
  - Nausea [Recovering/Resolving]
  - C-reactive protein increased [Not Recovered/Not Resolved]
  - Intestinal obstruction [Recovered/Resolved]
  - Pyrexia [Not Recovered/Not Resolved]
  - Crohn^s disease [Unknown]
  - Small intestinal obstruction [Not Recovered/Not Resolved]
  - Body temperature increased [Unknown]
  - Pollakiuria [Unknown]
  - Palpitations [Unknown]
  - Tremor [Unknown]
  - Fatigue [Not Recovered/Not Resolved]
  - Oral herpes [Not Recovered/Not Resolved]
  - Confusional state [Not Recovered/Not Resolved]
  - Constipation [Unknown]
  - Paranoia [Not Recovered/Not Resolved]
  - Weight decreased [Not Recovered/Not Resolved]
  - Stoma site erythema [Recovering/Resolving]
  - Abnormal faeces [Recovering/Resolving]
  - Muscle spasms [Recovered/Resolved]
  - Dehydration [Unknown]
  - Arthralgia [Unknown]
  - Blood pressure increased [Unknown]
  - Infusion related reaction [Unknown]
  - Diarrhoea [Recovering/Resolving]
  - General physical health deterioration [Unknown]
  - Abdominal discomfort [Unknown]
  - Choking sensation [Not Recovered/Not Resolved]
  - Inflammation [Recovering/Resolving]
  - Back injury [Recovering/Resolving]
  - Haemoglobin decreased [Not Recovered/Not Resolved]
  - White blood cell count decreased [Not Recovered/Not Resolved]
  - Myalgia [Not Recovered/Not Resolved]
  - Depression [Recovering/Resolving]
  - Obstruction [Unknown]
  - Pain [Unknown]
  - Headache [Unknown]
  - Injection site pain [Unknown]
  - Influenza like illness [Unknown]
  - Vomiting [Not Recovered/Not Resolved]
  - Decreased appetite [Not Recovered/Not Resolved]
  - Abdominal pain [Unknown]
  - Abdominal distension [Unknown]
  - Product prescribing issue [Unknown]
  - Product dose omission issue [Not Recovered/Not Resolved]

NARRATIVE: CASE EVENT DATE: 20210101
